FAERS Safety Report 16971376 (Version 4)
Quarter: 2024Q2

REPORT INFORMATION
  Report Type: Report from Study
  Country: AU (occurrence: AU)
  Receive Date: 20191029
  Receipt Date: 20240531
  Transmission Date: 20240715
  Serious: Yes (Hospitalization, Other)
  Sender: FDA-Public Use
  Company Number: AU-JNJFOC-20191027442

PATIENT
  Age: 60 Year
  Sex: Female

DRUGS (1)
  1. REMICADE [Suspect]
     Active Substance: INFLIXIMAB
     Indication: Psoriasis
     Dates: start: 20190205

REACTIONS (4)
  - Pneumonia [Not Recovered/Not Resolved]
  - Pulmonary cavitation [Unknown]
  - Colon cancer [Recovering/Resolving]
  - Large intestine polyp [Recovering/Resolving]
